FAERS Safety Report 21451162 (Version 2)
Quarter: 2022Q4

REPORT INFORMATION
  Report Type: Report from Study
  Country: US (occurrence: US)
  Receive Date: 20221013
  Receipt Date: 20221108
  Transmission Date: 20230113
  Serious: Yes (Other)
  Sender: FDA-Public Use
  Company Number: US-BRISTOL-MYERS SQUIBB COMPANY-2022-115792

PATIENT
  Age: 52 Year
  Sex: Female
  Weight: 73.94 kg

DRUGS (2)
  1. POMALYST [Suspect]
     Active Substance: POMALIDOMIDE
     Indication: Plasma cell myeloma
     Dosage: FREQUENCY: 21 OUT OF 28 DAYS?31 JAN 2026
     Route: 048
     Dates: start: 20211119
  2. POMALYST [Suspect]
     Active Substance: POMALIDOMIDE
     Indication: Idiopathic urticaria

REACTIONS (5)
  - COVID-19 [Recovered/Resolved]
  - Ventricular extrasystoles [Unknown]
  - Constipation [Unknown]
  - Diarrhoea [Unknown]
  - Neuropathy peripheral [Unknown]

NARRATIVE: CASE EVENT DATE: 20220908
